FAERS Safety Report 18814963 (Version 1)
Quarter: 2021Q1

REPORT INFORMATION
  Report Type: Spontaneous
  Country: US (occurrence: US)
  Receive Date: 20210129
  Receipt Date: 20210129
  Transmission Date: 20210419
  Serious: Yes (Other)
  Sender: FDA-Public Use
  Company Number: None

PATIENT
  Age: 91 Year
  Sex: Male
  Weight: 72 kg

DRUGS (5)
  1. TIMOLOL. [Concomitant]
     Active Substance: TIMOLOL
  2. AREDS 2 [Concomitant]
     Active Substance: MINERALS\VITAMINS
  3. VOTRIENT [Suspect]
     Active Substance: PAZOPANIB HYDROCHLORIDE
     Indication: RENAL CANCER
     Route: 048
     Dates: start: 20201225
  4. VITAMIN D [Concomitant]
     Active Substance: VITAMIN D NOS
  5. DEXAMETHASONE. [Concomitant]
     Active Substance: DEXAMETHASONE

REACTIONS (1)
  - Pneumonitis [None]

NARRATIVE: CASE EVENT DATE: 20210129
